FAERS Safety Report 8957377 (Version 1)
Quarter: 2012Q4

REPORT INFORMATION
  Report Type: Spontaneous
  Country: US (occurrence: None)
  Receive Date: 20121128
  Receipt Date: 20121128
  Transmission Date: 20130627
  Serious: Yes (Other)
  Sender: FDA-Public Use
  Company Number: 001405914A

PATIENT
  Age: 75 Year
  Sex: Female

DRUGS (5)
  1. PROACTIV CLEANSER [Suspect]
     Indication: ACNE
     Dosage: once daily dermal
     Dates: start: 20121014, end: 20121015
  2. PROACTIV REPAIRING TREATMENT [Suspect]
     Indication: ACNE
     Dosage: once daily dermal
     Dates: start: 20121014, end: 20121015
  3. METOPROLOL [Concomitant]
  4. NEXIUM [Concomitant]
  5. ALLOPURINOL [Concomitant]

REACTIONS (6)
  - Pruritus [None]
  - Urticaria [None]
  - Swelling face [None]
  - Eye swelling [None]
  - Headache [None]
  - Skin exfoliation [None]
